FAERS Safety Report 7198889-9 (Version None)
Quarter: 2010Q4

REPORT INFORMATION
  Report Type: 
  Country: None (occurrence: None)
  Receive Date: 20101227
  Receipt Date: 20101219
  Transmission Date: 20110411
  Serious: Yes (Other)
  Sender: FDA-Public Use
  Company Number: US-ABBOTT-10P-163-0692911-00

PATIENT
  Age: 23 Year
  Sex: Female

DRUGS (13)
  1. HUMIRA [Suspect]
     Indication: CROHN'S DISEASE
     Dosage: LOADING DOSE
     Dates: start: 20101101, end: 20101101
  2. PAROXETINE HCL [Concomitant]
     Indication: DEPRESSION
  3. ONDANSETRON [Concomitant]
     Indication: NAUSEA
  4. VALACYCLOVIR [Concomitant]
     Indication: HERPES VIRUS INFECTION
  5. OXYCONTIN [Concomitant]
     Indication: PAIN
  6. OXYCODONE [Concomitant]
     Indication: BREAKTHROUGH PAIN
  7. VITAMIN E [Concomitant]
     Indication: PRODUCT USED FOR UNKNOWN INDICATION
  8. VITAMIN D [Concomitant]
     Indication: PRODUCT USED FOR UNKNOWN INDICATION
  9. IRON [Concomitant]
     Indication: PRODUCT USED FOR UNKNOWN INDICATION
  10. MAGNESIUM [Concomitant]
     Indication: PRODUCT USED FOR UNKNOWN INDICATION
  11. CALCIUM [Concomitant]
     Indication: PRODUCT USED FOR UNKNOWN INDICATION
  12. ZINC [Concomitant]
     Indication: PRODUCT USED FOR UNKNOWN INDICATION
  13. JUICE PLUS [Concomitant]
     Indication: PRODUCT USED FOR UNKNOWN INDICATION

REACTIONS (7)
  - CHLAMYDIAL INFECTION [None]
  - CROHN'S DISEASE [None]
  - FEELING ABNORMAL [None]
  - HERPES VIRUS INFECTION [None]
  - INFLUENZA [None]
  - NASOPHARYNGITIS [None]
  - PRECANCEROUS CELLS PRESENT [None]
